FAERS Safety Report 7649950-3 (Version None)
Quarter: 2011Q3

REPORT INFORMATION
  Report Type: 
  Country: None (occurrence: None)
  Receive Date: 20110802
  Receipt Date: 20110728
  Transmission Date: 20111222
  Serious: Yes (Other)
  Sender: FDA-Public Use
  Company Number: CH-BAYER-2011-066195

PATIENT
  Age: 22 Year
  Sex: Female

DRUGS (2)
  1. LORAZEPAM [Suspect]
  2. ULTRAVIST 150 [Suspect]
     Indication: ANGIOGRAM
     Dosage: UNK
     Dates: start: 20110221, end: 20110221

REACTIONS (5)
  - EXCESSIVE OCULAR CONVERGENCE [None]
  - THROMBOCYTOPENIA [None]
  - NO ADVERSE EVENT [None]
  - MATERNAL EXPOSURE DURING PREGNANCY [None]
  - STRESS [None]
